FAERS Safety Report 9658652 (Version 2)
Quarter: 2013Q4

REPORT INFORMATION
  Report Type: Spontaneous
  Country: US (occurrence: US)
  Receive Date: 20131030
  Receipt Date: 20131030
  Transmission Date: 20140711
  Serious: No
  Sender: FDA-Public Use
  Company Number: US-PURDUE-USA-2010-0054520

PATIENT
  Sex: Female

DRUGS (3)
  1. OXYCONTIN (NDA 22-272) [Suspect]
     Indication: PAIN
     Dosage: 320 MG, QID
     Route: 048
  2. TYLENOL                            /00020001/ [Concomitant]
     Indication: MIGRAINE
  3. TUMS                               /00751519/ [Concomitant]
     Indication: ABDOMINAL DISCOMFORT

REACTIONS (6)
  - Migraine [Recovered/Resolved]
  - Visual impairment [Recovered/Resolved]
  - Vomiting [Unknown]
  - Nausea [Unknown]
  - Malaise [Unknown]
  - Headache [Unknown]
